FAERS Safety Report 9120988 (Version 2)
Quarter: 2013Q2

REPORT INFORMATION
  Report Type: Spontaneous
  Country: FR (occurrence: FR)
  Receive Date: 20130226
  Receipt Date: 20130501
  Transmission Date: 20140414
  Serious: Yes (Death)
  Sender: FDA-Public Use
  Company Number: CHPA2013FR003585

PATIENT
  Age: 90 Year
  Sex: Male

DRUGS (5)
  1. SCOPODERM TTS [Suspect]
     Dosage: 1 DF, Q72H
     Route: 062
     Dates: start: 20130117, end: 20130119
  2. AUGMENTIN /UNK/ [Suspect]
     Indication: LUNG DISORDER
     Dosage: 1 G, TID
     Route: 048
     Dates: start: 20130117, end: 20130119
  3. AMIODARONE [Concomitant]
     Dosage: 1 DF, QD IN THE MORNING
     Dates: start: 20121031
  4. PRADAXA [Concomitant]
     Dosage: 1 DF, BID
     Dates: start: 20120906
  5. LASILIX - SLOW RELEASE [Concomitant]
     Dosage: 1 DF, QD IN THE MORNING
     Dates: start: 20121031

REACTIONS (3)
  - Fall [Fatal]
  - Femoral neck fracture [Fatal]
  - Confusional state [Fatal]
